FAERS Safety Report 13269936 (Version 1)
Quarter: 2017Q1

REPORT INFORMATION
  Report Type: Spontaneous
  Country: US (occurrence: US)
  Receive Date: 20170224
  Receipt Date: 20170224
  Transmission Date: 20170428
  Serious: No
  Sender: FDA-Public Use
  Company Number: US-IMPAX LABORATORIES, INC-2016-IPXL-01739

PATIENT
  Sex: Male
  Weight: 97.61 kg

DRUGS (1)
  1. MIRTAZAPINE ODT [Suspect]
     Active Substance: MIRTAZAPINE
     Indication: MAJOR DEPRESSION
     Route: 065
     Dates: start: 20151217

REACTIONS (4)
  - Dizziness [Unknown]
  - Orthostatic hypertension [Unknown]
  - Restlessness [Unknown]
  - Insomnia [Unknown]
